FAERS Safety Report 10260954 (Version 1)
Quarter: 2014Q2

REPORT INFORMATION
  Report Type: Spontaneous
  Country: US (occurrence: None)
  Receive Date: 20140623
  Receipt Date: 20140623
  Transmission Date: 20141212
  Serious: Yes (Hospitalization)
  Sender: FDA-Public Use
  Company Number: US-H14001-14-00081

PATIENT
  Age: 66 Year
  Sex: Female

DRUGS (1)
  1. LITHIUM (LITHIUM) (UNKNOWN) (LITHIUM) [Suspect]
     Indication: PRODUCT USED FOR UNKNOWN INDICATION

REACTIONS (7)
  - Toxicity to various agents [None]
  - Agitation [None]
  - Mental status changes [None]
  - Renal failure acute [None]
  - Nephrogenic diabetes insipidus [None]
  - Antipsychotic drug level above therapeutic [None]
  - Hyperparathyroidism [None]
